FAERS Safety Report 6410184-1 (Version None)
Quarter: 2009Q4

REPORT INFORMATION
  Report Type: 
  Country: None (occurrence: None)
  Receive Date: 20091020
  Receipt Date: 20091020
  Transmission Date: 20100525
  Serious: Yes (Disabling)
  Sender: FDA-Public Use
  Company Number: None

PATIENT
  Age: 26 Year
  Sex: Female
  Weight: 65.7716 kg

DRUGS (2)
  1. CREST PRO-HEALTH CREST [Suspect]
     Indication: PROPHYLAXIS
     Dosage: 20 ML DAILY PO
     Route: 048
     Dates: start: 20090821, end: 20091018
  2. CREST PRO-HEALTH MOUTHWASH [Concomitant]

REACTIONS (6)
  - DEPRESSION [None]
  - DRUG INEFFECTIVE [None]
  - MENTAL IMPAIRMENT [None]
  - PAIN [None]
  - PRODUCT QUALITY ISSUE [None]
  - TOOTH DISCOLOURATION [None]
